FAERS Safety Report 7642173-3 (Version None)
Quarter: 2011Q3

REPORT INFORMATION
  Report Type: 
  Country: None (occurrence: None)
  Receive Date: 20110727
  Receipt Date: 20110727
  Transmission Date: 20111222
  Serious: No
  Sender: FDA-Public Use
  Company Number: None

PATIENT
  Age: 72 Year
  Sex: Female
  Weight: 55.3388 kg

DRUGS (6)
  1. VITAMIN TAB [Concomitant]
  2. DEXILANT [Suspect]
     Indication: GASTROOESOPHAGEAL REFLUX DISEASE
     Dosage: 60MG DAILY P.O.
     Route: 048
     Dates: start: 20110624, end: 20110628
  3. LISINOPRIL AND HYDROCHLOROTHIAZIDE [Concomitant]
  4. VITAMIN D [Concomitant]
  5. SYNTHROID [Concomitant]
  6. CALCIUM ACETATE [Concomitant]

REACTIONS (4)
  - ABDOMINAL PAIN UPPER [None]
  - NAUSEA [None]
  - NASOPHARYNGITIS [None]
  - DYSPEPSIA [None]
